FAERS Safety Report 25985339 (Version 1)
Quarter: 2025Q4

REPORT INFORMATION
  Report Type: Spontaneous
  Country: US (occurrence: None)
  Receive Date: 20251031
  Receipt Date: 20251031
  Transmission Date: 20260118
  Serious: Yes (Death, Hospitalization)
  Sender: FDA-CTU
  Company Number: None

PATIENT
  Age: 53 Year
  Sex: Male

DRUGS (13)
  1. AMBRISENTAN [Suspect]
     Active Substance: AMBRISENTAN
     Indication: Pulmonary hypertension
     Dosage: 10MG QD ORAL ?
     Route: 048
     Dates: start: 20230104, end: 20250721
  2. LASIX [Suspect]
     Active Substance: FUROSEMIDE
  3. METOLAZONE [Suspect]
     Active Substance: METOLAZONE
  4. LISINOPRIL [Suspect]
     Active Substance: LISINOPRIL
  5. TADALAFIL [Suspect]
     Active Substance: TADALAFIL
  6. UPTRAVI [Suspect]
     Active Substance: SELEXIPAG
  7. JARDIANCE [Concomitant]
     Active Substance: EMPAGLIFLOZIN
  8. TORSEMIDE [Concomitant]
     Active Substance: TORSEMIDE
  9. Oxygen Intranasal [Concomitant]
  10. AMLODIPINE [Concomitant]
     Active Substance: AMLODIPINE BESYLATE
  11. NPH INSULIN [Concomitant]
     Active Substance: INSULIN BEEF
  12. DIGOXIN [Concomitant]
     Active Substance: DIGOXIN
  13. GABAPENTIN [Concomitant]
     Active Substance: GABAPENTIN

REACTIONS (2)
  - Hypotension [None]
  - Dehydration [None]

NARRATIVE: CASE EVENT DATE: 20250721
